FAERS Safety Report 10074426 (Version 1)
Quarter: 2014Q2

REPORT INFORMATION
  Report Type: Spontaneous
  Country: US (occurrence: US)
  Receive Date: 20140411
  Receipt Date: 20140411
  Transmission Date: 20141212
  Serious: No
  Sender: FDA-Public Use
  Company Number: US-SANOFI-AVENTIS-2013SA083605

PATIENT
  Age: 60 Year
  Sex: Female
  Weight: 55.8 kg

DRUGS (3)
  1. ALLEGRA-D, 24 HR [Suspect]
     Indication: HYPERSENSITIVITY
     Route: 048
     Dates: start: 20130806, end: 20130810
  2. ALLEGRA-D, 24 HR [Suspect]
     Indication: NASAL CONGESTION
     Route: 048
     Dates: start: 20130806, end: 20130810
  3. PRAVASTATIN [Concomitant]
     Indication: BLOOD CHOLESTEROL
     Dates: start: 201208

REACTIONS (1)
  - Drug ineffective [Unknown]
